FAERS Safety Report 24141049 (Version 1)
Quarter: 2024Q3

REPORT INFORMATION
  Report Type: Spontaneous
  Country: US (occurrence: US)
  Receive Date: 20240726
  Receipt Date: 20240726
  Transmission Date: 20241016
  Serious: No
  Sender: SANOFI AVENTIS
  Company Number: US-SA-SAC20240722000496

PATIENT
  Age: 56 Year
  Sex: Female

DRUGS (1)
  1. DUPIXENT [Suspect]
     Active Substance: DUPILUMAB
     Indication: Dermatitis atopic
     Dosage: LOADING DOSE, 1X
     Route: 058
     Dates: start: 20240711, end: 20240711

REACTIONS (2)
  - Eye pain [Unknown]
  - Dry skin [Unknown]

NARRATIVE: CASE EVENT DATE: 20240701
